FAERS Safety Report 15207933 (Version 2)
Quarter: 2018Q3

REPORT INFORMATION
  Report Type: Spontaneous
  Country: GB (occurrence: GB)
  Receive Date: 20180727
  Receipt Date: 20180806
  Transmission Date: 20181010
  Serious: Yes (Death, Hospitalization, Other)
  Sender: FDA-Public Use
  Company Number: GB-PFIZER INC-5539

PATIENT
  Age: 59 Year
  Sex: Female

DRUGS (2)
  1. CARBOPLATIN. [Suspect]
     Active Substance: CARBOPLATIN
     Indication: OVARIAN CANCER
     Dosage: MONTHLY INTERVALS, RECEIVING FIVE DOSES IN TOTAL
     Route: 065
  2. WARFARIN [Suspect]
     Active Substance: WARFARIN
     Indication: DEEP VEIN THROMBOSIS
     Dosage: UNK
     Route: 065

REACTIONS (7)
  - Cardiac arrest [Fatal]
  - Systemic scleroderma [Unknown]
  - International normalised ratio increased [Unknown]
  - Microangiopathic haemolytic anaemia [Unknown]
  - Acute kidney injury [Unknown]
  - Thrombotic microangiopathy [Not Recovered/Not Resolved]
  - Blood creatinine increased [Unknown]
